FAERS Safety Report 11795674 (Version 1)
Quarter: 2015Q4

REPORT INFORMATION
  Report Type: Spontaneous
  Country: CN (occurrence: CN)
  Receive Date: 20151202
  Receipt Date: 20151202
  Transmission Date: 20160305
  Serious: Yes (Hospitalization, Other)
  Sender: FDA-Public Use
  Company Number: CN-GILEAD-2015-0185848

PATIENT
  Age: 50 Year
  Sex: Male

DRUGS (2)
  1. LAMIVUDINE. [Suspect]
     Active Substance: LAMIVUDINE
     Indication: CHRONIC HEPATITIS B
     Dosage: 0.1 G, QD
     Route: 065
  2. HEPSERA [Suspect]
     Active Substance: ADEFOVIR DIPIVOXIL
     Indication: CHRONIC HEPATITIS B
     Dosage: 10 MG, BID
     Route: 065

REACTIONS (12)
  - Hepatic function abnormal [Unknown]
  - Aspartate aminotransferase increased [Unknown]
  - Movement disorder [Unknown]
  - Hyperparathyroidism [Unknown]
  - Pain [Recovering/Resolving]
  - Osteomalacia [Unknown]
  - Gait disturbance [Recovering/Resolving]
  - Pain [Unknown]
  - Fanconi syndrome acquired [Recovering/Resolving]
  - Osteoporosis [Unknown]
  - Hypophosphataemia [Unknown]
  - Condition aggravated [Unknown]

NARRATIVE: CASE EVENT DATE: 200305
